FAERS Safety Report 7588105-8 (Version None)
Quarter: 2011Q2

REPORT INFORMATION
  Report Type: 
  Country: None (occurrence: None)
  Receive Date: 20110603
  Receipt Date: 20110404
  Transmission Date: 20111010
  Serious: No
  Sender: FDA-Public Use
  Company Number: 2011SP017046

PATIENT
  Sex: Male

DRUGS (3)
  1. SAPHRIS [Suspect]
     Indication: DEPRESSION
     Dosage: 5 MG. BID ; SL
     Route: 060
     Dates: start: 20110101, end: 20110101
  2. SAPHRIS [Suspect]
     Indication: BIPOLAR DISORDER
     Dosage: 5 MG. BID ; SL
     Route: 060
     Dates: start: 20110101, end: 20110101
  3. LITHIUM [Concomitant]

REACTIONS (1)
  - NAUSEA [None]
